FAERS Safety Report 6437114-0 (Version None)
Quarter: 2009Q4

REPORT INFORMATION
  Report Type: 
  Country: None (occurrence: None)
  Receive Date: 20091112
  Receipt Date: 20091104
  Transmission Date: 20100525
  Serious: Yes (Hospitalization, Other)
  Sender: FDA-Public Use
  Company Number: CA-JNJFOC-20091101991

PATIENT
  Sex: Male
  Weight: 64.4 kg

DRUGS (1)
  1. REMICADE [Suspect]
     Indication: CROHN'S DISEASE
     Dosage: 26 INFUSIONS
     Route: 042
     Dates: start: 20051107, end: 20090916

REACTIONS (2)
  - COLON CANCER [None]
  - COLONIC STENOSIS [None]
